FAERS Safety Report 8320463-9 (Version None)
Quarter: 2012Q2

REPORT INFORMATION
  Report Type: 
  Country: None (occurrence: None)
  Receive Date: 20120426
  Receipt Date: 20120426
  Transmission Date: 20120825
  Serious: No
  Sender: FDA-Public Use
  Company Number: None

PATIENT
  Age: 19 Year
  Sex: Female
  Weight: 45.3597 kg

DRUGS (2)
  1. PROCHLORPERAZINE [Suspect]
     Indication: NAUSEA
     Dosage: 25 MG 3X DAY
     Dates: start: 20120408, end: 20120410
  2. PROCHLORPERAZINE [Suspect]
     Indication: VOMITING
     Dosage: 25 MG 3X DAY
     Dates: start: 20120408, end: 20120410

REACTIONS (2)
  - MUSCLE TWITCHING [None]
  - DYSKINESIA [None]
